FAERS Safety Report 22035599 (Version 1)
Quarter: 2023Q1

REPORT INFORMATION
  Report Type: Spontaneous
  Country: US (occurrence: None)
  Receive Date: 20230223
  Receipt Date: 20230223
  Transmission Date: 20230418
  Serious: No
  Sender: FDA-Public Use
  Company Number: None

PATIENT
  Age: 20 Year
  Sex: Male
  Weight: 81 kg

DRUGS (1)
  1. TOPIRAMATE [Suspect]
     Active Substance: TOPIRAMATE
     Indication: Migraine
     Dosage: OTHER FREQUENCY : QD;?
     Route: 048
     Dates: start: 20230209, end: 20230218

REACTIONS (4)
  - Wrong dose [None]
  - Feeling abnormal [None]
  - Visual impairment [None]
  - Product prescribing issue [None]

NARRATIVE: CASE EVENT DATE: 20230218
